FAERS Safety Report 4511593-8 (Version None)
Quarter: 2004Q4

REPORT INFORMATION
  Report Type: 
  Country: None (occurrence: None)
  Receive Date: 20041129
  Receipt Date: 20041012
  Transmission Date: 20050328
  Serious: No
  Sender: FDA-Public Use
  Company Number: US-BRISTOL-MYERS SQUIBB COMPANY-12729018

PATIENT
  Age: 40 Year
  Sex: Male
  Weight: 74 kg

DRUGS (2)
  1. ABILIFY [Suspect]
     Indication: MANIA
     Dosage: 5 MG/DAY FROM 30 SEP, INCREASED TO 7.5 MG/DAY 7 DAYS LATER, D/C
     Route: 048
     Dates: start: 20040930, end: 20041009
  2. MULTIVITAMIN [Concomitant]

REACTIONS (2)
  - INSOMNIA [None]
  - STOMACH DISCOMFORT [None]
